FAERS Safety Report 10024168 (Version 1)
Quarter: 2014Q1

REPORT INFORMATION
  Report Type: Spontaneous
  Country: US (occurrence: None)
  Receive Date: 20140127
  Receipt Date: 20140127
  Transmission Date: 20141002
  Serious: Yes (Life-Threatening, Hospitalization, Other)
  Sender: FDA-Public Use
  Company Number: ADR-2013-02344

PATIENT
  Age: 80 Year
  Sex: Female

DRUGS (2)
  1. LIORESAL [Suspect]
     Indication: MUSCLE SPASTICITY
     Dosage: 24 MCG/DAY
     Dates: start: 20131212
  2. GABAPENTIN [Suspect]

REACTIONS (3)
  - Unresponsive to stimuli [None]
  - Hypotension [None]
  - Incorrect dose administered [None]
